FAERS Safety Report 9306934 (Version 2)
Quarter: 2013Q1

REPORT INFORMATION
  Report Type: Spontaneous
  Country: MX (occurrence: None)
  Receive Date: 20130307
  Receipt Date: 20130318
  Transmission Date: 20140127
  Serious: Yes (Disabling)
  Sender: FDA-Public Use
  Company Number: ENTC2012-0430

PATIENT
  Sex: Female

DRUGS (5)
  1. STALEVO  (LEVODOPA,  CARBIDOPA,  ENTACAPONE) [Suspect]
     Dosage: 3  DF,  (150/37.5/200 MG)  DAILY  (1  DOSAGE  FORM,  3  IN  1  D)
     Route: 048
     Dates: start: 20081209
  2. EXFORGE [Suspect]
     Indication: HYPERTENSION
     Dosage: STRENGTH  160/10  MG;  3  DF  (VALS  160  MG,  AMLO  10  MG)  PER  DAY?(1  DOSAGE  FORM  3  IN  1  D)
     Route: 048
  3. CLOPIDOGREL [Concomitant]
  4. PRAMIPEXOLE [Concomitant]
  5. SERTRALINE [Concomitant]

REACTIONS (6)
  - Spinal disorder [None]
  - Spinal pain [None]
  - Gait disturbance [None]
  - Gait disturbance [None]
  - Abasia [None]
  - Wheelchair user [None]
